FAERS Safety Report 15898470 (Version 1)
Quarter: 2019Q1

REPORT INFORMATION
  Report Type: Spontaneous
  Country: ES (occurrence: ES)
  Receive Date: 20190201
  Receipt Date: 20190201
  Transmission Date: 20190417
  Serious: Yes (Disabling)
  Sender: FDA-Public Use
  Company Number: ES-ACCORD-105063

PATIENT
  Age: 77 Year
  Sex: Female

DRUGS (6)
  1. CARBOPLATIN. [Suspect]
     Active Substance: CARBOPLATIN
     Indication: PRODUCT USED FOR UNKNOWN INDICATION
  2. PREDNISONE. [Concomitant]
     Active Substance: PREDNISONE
  3. FENTANYL MATRIX CINFA [Concomitant]
     Dosage: STRENGTH : 75 MICROGRAMS / H
  4. PANTOPRAZOLE [Concomitant]
     Active Substance: PANTOPRAZOLE
     Dosage: STRENGHT : 40 MG
  5. PEMETREXED/PEMETREXED DISODIUM [Concomitant]
  6. LYRICA [Concomitant]
     Active Substance: PREGABALIN
     Dosage: STRENGTH : 75 MG

REACTIONS (3)
  - Corneal disorder [Not Recovered/Not Resolved]
  - Corneal perforation [Not Recovered/Not Resolved]
  - Ulcerative keratitis [Not Recovered/Not Resolved]

NARRATIVE: CASE EVENT DATE: 2018
